FAERS Safety Report 7877170-6 (Version None)
Quarter: 2011Q4

REPORT INFORMATION
  Report Type: 
  Country: None (occurrence: None)
  Receive Date: 20111031
  Receipt Date: 20111021
  Transmission Date: 20120403
  Serious: Yes (Hospitalization, Other)
  Sender: FDA-Public Use
  Company Number: US-BAYER-2011-055293

PATIENT
  Sex: Female
  Weight: 122 kg

DRUGS (3)
  1. YAZ [Suspect]
     Indication: PRODUCT USED FOR UNKNOWN INDICATION
     Dosage: UNK
     Route: 048
     Dates: start: 20090101
  2. METFORMIN HCL [Concomitant]
     Indication: POLYCYSTIC OVARIES
  3. PRILOSEC [Concomitant]
     Indication: DYSPEPSIA

REACTIONS (5)
  - CHOLELITHIASIS [None]
  - THROMBOSIS [None]
  - INJURY [None]
  - GASTROINTESTINAL HAEMORRHAGE [None]
  - PAIN [None]
